FAERS Safety Report 23213696 (Version 1)
Quarter: 2023Q4

REPORT INFORMATION
  Report Type: Spontaneous
  Country: US (occurrence: US)
  Receive Date: 20231121
  Receipt Date: 20231121
  Transmission Date: 20240109
  Serious: Yes (Other)
  Sender: FDA-Public Use
  Company Number: US-BRISTOL-MYERS SQUIBB COMPANY-2023-164340

PATIENT
  Age: 66 Year
  Sex: Female

DRUGS (1)
  1. LENALIDOMIDE [Suspect]
     Active Substance: LENALIDOMIDE
     Indication: Plasma cell myeloma
     Dosage: FREQUENCY- TAKE 1 WHOLE CAPSULE BY MOUTH WITH WATER, W/ OR W/O FOOD AT THE SAME TIME EVERY DAY FOR 2
     Route: 048
     Dates: start: 20221105, end: 20231117

REACTIONS (1)
  - Plasma cell myeloma [Not Recovered/Not Resolved]
